FAERS Safety Report 8187378-0 (Version None)
Quarter: 2012Q1

REPORT INFORMATION
  Report Type: 
  Country: None (occurrence: None)
  Receive Date: 20120302
  Receipt Date: 20120217
  Transmission Date: 20120608
  Serious: Yes (Hospitalization)
  Sender: FDA-Public Use
  Company Number: A0966595A

PATIENT
  Sex: Female
  Weight: 59.2851 kg

DRUGS (19)
  1. CARVEDILOL [Concomitant]
  2. SIMVASTATIN [Suspect]
     Dosage: 40 MG / TWICE PER DAY / ORAL
     Route: 048
     Dates: end: 20090828
  3. BENZONATATE [Concomitant]
  4. PIOGLITAZONE [Suspect]
     Dosage: 30 MG / PER DAY
  5. ONDANSETRON HYDROCHLORIDE [Suspect]
     Dosage: AS REQUIRED / ORAL
     Route: 048
     Dates: end: 20090828
  6. MAGNESIUM CITRATE [Concomitant]
  7. RANITIDINE HYDROCHLORIDE [Suspect]
     Dosage: 150 MG / TWICE PER DAY
     Dates: end: 20090828
  8. SUNITINIB (FORMULATION UNKNOWN) (SUNITINIB) [Suspect]
     Dosage: 50 MG / PER DAY
     Dates: end: 20090828
  9. RISEDRONIC ACID [Concomitant]
  10. AMLODIPINE [Concomitant]
  11. INVESTIGAT. DRUG UNSPEC. (FORMULATION UNKNOWN) (INVESTIGAT. DRUG UNSPE [Suspect]
  12. FERROUS GLUCONATE (FORMULATION UNKNOWN) (FERROUS GLUCONATE) [Suspect]
     Indication: IRON DEFICIENCY
     Dosage: 325 MG / TWICE PER DAY / ORAL
     Route: 048
     Dates: end: 20090828
  13. RADIOTHERAPY (FORMULATION UNKNOWN) (RADIOTHERAPY) [Suspect]
     Dosage: 37.5 GRAY
     Dates: start: 20090408
  14. LORTAB [Suspect]
     Dosage: AS REQUIRED
  15. MEGESTROL ACETATE [Suspect]
     Dosage: ORAL
     Route: 048
  16. DOCUSATE SODIUM (FORMULATION UNKNOWN) (DOCUSATE SODIUM) [Suspect]
     Dosage: 100 MG / TWICE PER DAY
  17. CIPROFLOXACIN HCL [Concomitant]
  18. ASPIRIN [Concomitant]
  19. ACETAMINOPHEN [Concomitant]

REACTIONS (13)
  - POSTERIOR REVERSIBLE ENCEPHALOPATHY SYNDROME [None]
  - MALAISE [None]
  - NAUSEA [None]
  - UNEVALUABLE EVENT [None]
  - ABNORMAL BEHAVIOUR [None]
  - HEADACHE [None]
  - FATIGUE [None]
  - VOMITING [None]
  - BLOOD PRESSURE INCREASED [None]
  - PALLOR [None]
  - ABDOMINAL PAIN [None]
  - COGNITIVE DISORDER [None]
  - METASTASES TO CENTRAL NERVOUS SYSTEM [None]
